APPROVED DRUG PRODUCT: EPANOVA
Active Ingredient: OMEGA-3-CARBOXYLIC ACIDS
Strength: 1GM CONTAINS AT LEAST 850MG OF POLYUNSATURATED FATTY ACIDS
Dosage Form/Route: CAPSULE;ORAL
Application: N205060 | Product #001
Applicant: ASTRAZENECA PHARMACEUTICALS LP
Approved: May 5, 2014 | RLD: Yes | RS: No | Type: DISCN

PATENTS:
Patent 10117844 | Expires: Jan 4, 2033
Patent 9050308 | Expires: Jan 4, 2033
Patent 9050309 | Expires: Jan 4, 2033
Patent 7960370 | Expires: Dec 20, 2026